FAERS Safety Report 7035779 (Version 5)
Quarter: 2013Q2

REPORT INFORMATION
  Report Type: Report from Study
  Country: CA (occurrence: CA)
  Receive Date: 20090629
  Receipt Date: 20130612
  Transmission Date: 20140414
  Serious: Yes (Death, Other)
  Sender: FDA-Public Use
  Company Number: PHHY2009CA24690

PATIENT
  Age: 64 Year
  Sex: Male

DRUGS (2)
  1. SANDOSTATIN LAR [Suspect]
     Indication: NEUROENDOCRINE TUMOUR
     Dosage: 50 MG, UNK
     Route: 030
     Dates: start: 20051118
  2. SANDOSTATIN LAR [Suspect]
     Dosage: 40 MG EVERY 3 WEEKS
     Route: 030

REACTIONS (2)
  - Death [Fatal]
  - Blood pressure decreased [Unknown]
